FAERS Safety Report 7632555-8 (Version None)
Quarter: 2011Q3

REPORT INFORMATION
  Report Type: 
  Country: None (occurrence: None)
  Receive Date: 20110725
  Receipt Date: 20101011
  Transmission Date: 20111222
  Serious: Yes (Other)
  Sender: FDA-Public Use
  Company Number: US-BRISTOL-MYERS SQUIBB COMPANY-15327372

PATIENT
  Age: 67 Year
  Sex: Male
  Weight: 107 kg

DRUGS (17)
  1. LOPID [Concomitant]
  2. BETACAROTENE [Concomitant]
  3. MULTI-VITAMIN [Concomitant]
  4. FISH OIL [Concomitant]
  5. PEPCID [Concomitant]
  6. ALLOPURINOL [Concomitant]
  7. VICODIN [Concomitant]
  8. COUMADIN [Suspect]
  9. WARFARIN SODIUM [Suspect]
  10. PLAVIX [Suspect]
     Dates: start: 20100828
  11. PROCARDIA [Concomitant]
     Dosage: GENERAL PROCARDIA
  12. DYAZIDE [Concomitant]
  13. LOVASTATIN [Concomitant]
  14. VASOTEC [Concomitant]
  15. LOVENOX [Suspect]
  16. SYNTHROID [Concomitant]
  17. ASPIRIN [Suspect]

REACTIONS (1)
  - HAEMORRHAGE [None]
